FAERS Safety Report 8765239 (Version 2)
Quarter: 2012Q4

REPORT INFORMATION
  Report Type: 
  Country: US (occurrence: US)
  Receive Date: 20120903
  Receipt Date: 20120921
  Transmission Date: 20130627
  Serious: No
  Sender: FDA-Public Use
  Company Number: US-PFIZER INC-2012214778

PATIENT
  Age: 81 Year
  Sex: Male
  Weight: 68.03 kg

DRUGS (8)
  1. FLECTOR [Suspect]
     Indication: ARTHRALGIA
     Dosage: 1.3%, every 12 hours (12 hours on; 12 hours off)
     Route: 062
     Dates: start: 20120829
  2. FLECTOR [Suspect]
     Indication: SPINAL PAIN
  3. FLECTOR [Suspect]
     Indication: ARTHRALGIA
  4. ATORVASTATIN [Concomitant]
     Indication: HYPERLIPIDAEMIA
     Dosage: 40 mg, UNK
  5. OMEPRAZOLE [Concomitant]
     Indication: GASTROOESOPHAGEAL REFLUX DISEASE
     Dosage: 20 mg, 2x/day
  6. OMEGA 3 [Concomitant]
     Dosage: UNK
  7. METOPROLOL [Concomitant]
     Indication: ATRIAL FIBRILLATION
     Dosage: 12.5 mg, 2x/day
  8. AMLODIPINE/BENAZEPRIL [Concomitant]
     Dosage: 10-20 AM daily

REACTIONS (1)
  - Drug ineffective [Unknown]
